FAERS Safety Report 25606594 (Version 1)
Quarter: 2025Q3

REPORT INFORMATION
  Report Type: Spontaneous
  Country: US (occurrence: US)
  Receive Date: 20250725
  Receipt Date: 20250725
  Transmission Date: 20251020
  Serious: Yes (Death, Life-Threatening, Hospitalization, Other)
  Sender: AMGEN
  Company Number: US-AMGEN-USASP2025140260

PATIENT
  Age: 65 Year
  Sex: Male

DRUGS (3)
  1. RITUXIMAB [Suspect]
     Active Substance: RITUXIMAB
     Indication: Chronic myelomonocytic leukaemia
     Route: 065
  2. FILGRASTIM [Suspect]
     Active Substance: FILGRASTIM
     Indication: Chronic myelomonocytic leukaemia
     Route: 065
  3. BENDAMUSTINE [Concomitant]
     Active Substance: BENDAMUSTINE
     Indication: Chronic myelomonocytic leukaemia
     Route: 065

REACTIONS (15)
  - Cardiac arrest [Fatal]
  - Acute respiratory failure [Unknown]
  - Myocardial injury [Unknown]
  - Disseminated intravascular coagulation [Unknown]
  - Hemiparesis [Unknown]
  - Hyperleukocytosis [Unknown]
  - Subdural haematoma [Unknown]
  - Acute kidney injury [Unknown]
  - Thrombocytopenia [Unknown]
  - Tumour lysis syndrome [Unknown]
  - Aphasia [Unknown]
  - Tachycardia [Unknown]
  - Abdominal pain [Unknown]
  - Anaemia [Unknown]
  - Off label use [Unknown]
